FAERS Safety Report 10248002 (Version 2)
Quarter: 2014Q3

REPORT INFORMATION
  Report Type: Report from Study
  Country: BR (occurrence: BR)
  Receive Date: 20140619
  Receipt Date: 20140722
  Transmission Date: 20150326
  Serious: Yes (Hospitalization, Other)
  Sender: FDA-Public Use
  Company Number: PHHY2014BR076137

PATIENT
  Sex: Male
  Weight: 90 kg

DRUGS (2)
  1. DIOVAN [Suspect]
     Active Substance: VALSARTAN
     Indication: HYPERTENSION
     Dosage: 2 TABLET (80 MG), ONE IN THE MORNING AND ONE AT NIGHT, VIA FEEDING TUBE)
     Route: 048
     Dates: end: 201406
  2. DIOVAN [Suspect]
     Active Substance: VALSARTAN
     Dosage: 2 DF, (ONE IN THE MORNING, ONE AT NIGHT, VIA FEEDING TUBE)
     Route: 048

REACTIONS (11)
  - Prostate cancer [Not Recovered/Not Resolved]
  - Osteoarthritis [Unknown]
  - Renal failure chronic [Recovering/Resolving]
  - Device related infection [Recovered/Resolved]
  - Pneumonia [Recovered/Resolved]
  - Dementia Alzheimer^s type [Not Recovered/Not Resolved]
  - Gait disturbance [Unknown]
  - Wrong technique in drug usage process [Unknown]
  - Dysphagia [Not Recovered/Not Resolved]
  - Anaemia [Not Recovered/Not Resolved]
  - Osteoporosis [Unknown]

NARRATIVE: CASE EVENT DATE: 2013
